FAERS Safety Report 5145276-0 (Version None)
Quarter: 2006Q4

REPORT INFORMATION
  Report Type: 
  Country: None (occurrence: None)
  Receive Date: 20061107
  Receipt Date: 20060919
  Transmission Date: 20070319
  Serious: Yes (Life-Threatening, Other)
  Sender: FDA-Public Use
  Company Number: AR-ELI_LILLY_AND_COMPANY-AR200609004933

PATIENT
  Age: 60 Year
  Sex: Female

DRUGS (4)
  1. HUMULIN N [Suspect]
     Indication: DIABETES MELLITUS
     Dosage: 56 IU DAILY (1/D)
     Route: 058
     Dates: start: 19990919
  2. LORATADINE [Concomitant]
     Indication: ANTIALLERGIC THERAPY
     Dosage: 20 MG, UNK
     Route: 048
  3. LORATADINE [Concomitant]
     Dosage: 10 MG, DAILY (1/D)
     Route: 048
     Dates: start: 20050915
  4. METFORMIN HCL [Concomitant]
     Indication: HYPERGLYCAEMIA
     Dosage: 850 MG, 2/D
     Route: 048
     Dates: start: 19920101

REACTIONS (4)
  - ANAPHYLACTIC SHOCK [None]
  - GASTROINTESTINAL CARCINOMA [None]
  - HEADACHE [None]
  - PYREXIA [None]
